FAERS Safety Report 17047585 (Version 1)
Quarter: 2019Q4

REPORT INFORMATION
  Report Type: Spontaneous
  Country: US (occurrence: US)
  Receive Date: 20191018
  Receipt Date: 20191018
  Transmission Date: 20200122
  Serious: No
  Sender: FDA-Public Use
  Company Number: None

PATIENT
  Age: 46 Year
  Sex: Male

DRUGS (1)
  1. AMBRISENTAN 5MG TABLETS 30/BO: 5MG [Suspect]
     Active Substance: AMBRISENTAN
     Indication: PULMONARY ARTERIAL HYPERTENSION
     Route: 048
     Dates: start: 20190823, end: 20191018

REACTIONS (8)
  - Nasal congestion [None]
  - Oedema peripheral [None]
  - Headache [None]
  - Neuropathy peripheral [None]
  - Chest discomfort [None]
  - Weight increased [None]
  - Dyspnoea [None]
  - Epistaxis [None]

NARRATIVE: CASE EVENT DATE: 20191018
